FAERS Safety Report 12115225 (Version 1)
Quarter: 2016Q1

REPORT INFORMATION
  Report Type: Spontaneous
  Country: US (occurrence: US)
  Receive Date: 20160225
  Receipt Date: 20160225
  Transmission Date: 20160526
  Serious: No
  Sender: FDA-Public Use
  Company Number: US-BAYER-2016-028039

PATIENT
  Sex: Female

DRUGS (1)
  1. MIRALAX [Suspect]
     Active Substance: POLYETHYLENE GLYCOL 3350
     Dosage: 1/2 CAPFUL 3 TIMES A WEEK
     Dates: start: 2015, end: 2015

REACTIONS (4)
  - Muscle spasms [None]
  - Underdose [None]
  - Product use issue [None]
  - Irritable bowel syndrome [None]
